FAERS Safety Report 10219568 (Version 1)
Quarter: 2014Q2

REPORT INFORMATION
  Report Type: Spontaneous
  Country: US (occurrence: US)
  Receive Date: 20140605
  Receipt Date: 20140605
  Transmission Date: 20141212
  Serious: Yes (Other)
  Sender: FDA-Public Use
  Company Number: US-GLAXOSMITHKLINE-A1075857A

PATIENT
  Age: 79 Year
  Sex: Female

DRUGS (18)
  1. PROMACTA [Suspect]
     Indication: IMMUNE THROMBOCYTOPENIC PURPURA
     Dosage: 50MG SEE DOSAGE TEXT
     Route: 048
     Dates: start: 201206
  2. AMLODIPINE BESYLATE [Suspect]
     Indication: PRODUCT USED FOR UNKNOWN INDICATION
     Dosage: 10MG PER DAY
     Route: 048
  3. CYMBALTA [Suspect]
     Indication: PRODUCT USED FOR UNKNOWN INDICATION
     Dosage: 60MG PER DAY
     Route: 048
  4. DIOVAN [Suspect]
     Indication: PRODUCT USED FOR UNKNOWN INDICATION
     Dosage: 320MG PER DAY
     Route: 048
  5. LEVOTHYROXINE SODIUM [Suspect]
     Indication: PRODUCT USED FOR UNKNOWN INDICATION
     Dosage: 120MCG SEE DOSAGE TEXT
     Route: 048
  6. MAGNESIUM OXIDE [Suspect]
     Indication: PRODUCT USED FOR UNKNOWN INDICATION
     Dosage: 400MG UNKNOWN
     Route: 048
  7. OMEPRAZOLE [Suspect]
     Indication: PRODUCT USED FOR UNKNOWN INDICATION
     Dosage: 20MG TWICE PER DAY
     Route: 048
  8. SYNTHROID [Suspect]
     Indication: PRODUCT USED FOR UNKNOWN INDICATION
     Dosage: 112MCG SEE DOSAGE TEXT
     Route: 048
  9. BEANO [Suspect]
     Indication: PRODUCT USED FOR UNKNOWN INDICATION
     Dosage: 1TAB PER DAY
     Route: 048
  10. CALCIUM + D. VITAMIN [Suspect]
     Indication: PRODUCT USED FOR UNKNOWN INDICATION
     Route: 065
  11. SENNA [Suspect]
     Indication: PRODUCT USED FOR UNKNOWN INDICATION
     Dosage: 1TAB PER DAY
     Route: 065
  12. VITAMIN B12 [Suspect]
     Indication: PRODUCT USED FOR UNKNOWN INDICATION
     Dosage: 1000MCG PER DAY
     Route: 048
  13. VITAMIN C [Suspect]
     Indication: PRODUCT USED FOR UNKNOWN INDICATION
     Dosage: 1000MG PER DAY
     Route: 048
  14. CENTRUM SILVER [Concomitant]
  15. LANTUS [Concomitant]
  16. METOPROLOL SUCCINATE [Concomitant]
  17. PERCOCET [Concomitant]
  18. PROCHLORPERAZINE MALEATE [Concomitant]

REACTIONS (23)
  - Deafness [Unknown]
  - Fatigue [Unknown]
  - Weight increased [Unknown]
  - Stomatitis [Unknown]
  - Visual acuity reduced [Unknown]
  - Cough [Unknown]
  - Nausea [Unknown]
  - Diarrhoea [Unknown]
  - Constipation [Unknown]
  - Myalgia [Unknown]
  - Joint stiffness [Unknown]
  - Back pain [Unknown]
  - Pain in extremity [Unknown]
  - Rash [Unknown]
  - Blister [Unknown]
  - Rash pruritic [Unknown]
  - Muscular weakness [Unknown]
  - Paraesthesia [Unknown]
  - Gait disturbance [Unknown]
  - Headache [Unknown]
  - Cardiac murmur [Unknown]
  - Joint swelling [Unknown]
  - Amnesia [Unknown]
